FAERS Safety Report 7480362-1 (Version None)
Quarter: 2011Q2

REPORT INFORMATION
  Report Type: 
  Country: None (occurrence: None)
  Receive Date: 20110504
  Receipt Date: 20110307
  Transmission Date: 20111010
  Serious: Yes (Hospitalization, Other)
  Sender: FDA-Public Use
  Company Number: 1713747-2011-00006

PATIENT
  Age: 78 Year
  Sex: Female

DRUGS (2)
  1. LIBERTY PD CYCLER [Concomitant]
  2. DELFLEX W/ DEXTROSE 2.5% [Suspect]
     Indication: RENAL FAILURE CHRONIC
     Dosage: INTRAPERITONEAL
     Route: 033

REACTIONS (4)
  - KLEBSIELLA INFECTION [None]
  - PRODUCT CONTAINER ISSUE [None]
  - PERITONITIS BACTERIAL [None]
  - PRODUCT QUALITY ISSUE [None]
